FAERS Safety Report 8923089 (Version 1)
Quarter: 2012Q4

REPORT INFORMATION
  Report Type: 
  Country: NZ (occurrence: NZ)
  Receive Date: 20121124
  Receipt Date: 20121124
  Transmission Date: 20130627
  Serious: Yes (Death, Other)
  Sender: FDA-Public Use
  Company Number: PHHY2012NZ101808

PATIENT
  Age: 72 Year
  Sex: Female

DRUGS (4)
  1. CLOZARIL [Suspect]
     Indication: PSYCHOTIC DISORDER
     Dosage: 200 mg, UNK
     Route: 048
     Dates: start: 2001
  2. CLOZARIL [Suspect]
     Dosage: 475 mg
     Route: 048
     Dates: start: 20010410
  3. LAMOTRIGINE [Concomitant]
     Indication: MANIA
     Dosage: 200 mg
     Route: 048
     Dates: start: 20110413
  4. METHOTRIMEPRAZINE [Concomitant]
     Dosage: 400 mg
     Route: 048

REACTIONS (6)
  - Death [Fatal]
  - Renal failure chronic [Unknown]
  - Blood creatinine increased [Unknown]
  - Malaise [Unknown]
  - Respiratory arrest [Unknown]
  - Circulatory collapse [Unknown]
